FAERS Safety Report 4794510-5 (Version None)
Quarter: 2005Q4

REPORT INFORMATION
  Report Type: 
  Country: None (occurrence: None)
  Receive Date: 20051011
  Receipt Date: 20050928
  Transmission Date: 20060501
  Serious: Yes (Hospitalization)
  Sender: FDA-Public Use
  Company Number: IE-NOVOPROD-247359

PATIENT
  Age: 58 Year
  Sex: Female
  Weight: 55 kg

DRUGS (7)
  1. LEVEMIR [Suspect]
     Indication: ILL-DEFINED DISORDER
  2. ASPIRIN [Concomitant]
     Dosage: 75 MG, QD
     Route: 048
     Dates: start: 20011205
  3. IMDUR [Concomitant]
     Dosage: 60 MG, QD
     Route: 048
     Dates: start: 20040127
  4. PHENOBARBITONE [Concomitant]
     Dosage: 300 MG, QD
     Route: 048
     Dates: start: 19891213
  5. CALCICHEW [Concomitant]
     Route: 048
     Dates: start: 20040114
  6. ZESTRIL [Concomitant]
     Dosage: 60 MG, QD
     Dates: start: 20020130
  7. FRUSEMIDE [Concomitant]
     Dosage: 20 MG, QD
     Route: 048
     Dates: start: 20040114

REACTIONS (2)
  - CHRONIC OBSTRUCTIVE PULMONARY DISEASE [None]
  - INVESTIGATION [None]
